FAERS Safety Report 5431486-1 (Version None)
Quarter: 2007Q3

REPORT INFORMATION
  Report Type: 
  Country: None (occurrence: None)
  Receive Date: 20070830
  Receipt Date: 20070717
  Transmission Date: 20080115
  Serious: No
  Sender: FDA-Public Use
  Company Number: A0664610A

PATIENT
  Age: 38 Year
  Sex: Male

DRUGS (3)
  1. WELLBUTRIN XL [Suspect]
     Indication: DEPRESSION
     Dosage: 150MG PER DAY
     Route: 048
     Dates: start: 20070701
  2. WELLBUTRIN SR [Suspect]
     Indication: DEPRESSION
     Dosage: 100MG UNKNOWN
     Route: 048
     Dates: start: 20070601
  3. NO CONCURRENT MEDICATION [Concomitant]

REACTIONS (1)
  - RASH [None]
